FAERS Safety Report 22246507 (Version 1)
Quarter: 2023Q2

REPORT INFORMATION
  Report Type: Spontaneous
  Country: US (occurrence: None)
  Receive Date: 20230421
  Receipt Date: 20230421
  Transmission Date: 20230722
  Serious: No
  Sender: FDA-Public Use
  Company Number: None

PATIENT
  Age: 53 Year
  Sex: Female

DRUGS (1)
  1. FASENRA [Suspect]
     Active Substance: BENRALIZUMAB
     Indication: Asthma
     Dosage: 30MG ONCE WEEKLY SUBCUTANEOUS
     Route: 058
     Dates: start: 20230201

REACTIONS (3)
  - Fatigue [None]
  - Headache [None]
  - Injection related reaction [None]

NARRATIVE: CASE EVENT DATE: 20230201
